FAERS Safety Report 23252519 (Version 1)
Quarter: 2023Q4

REPORT INFORMATION
  Report Type: Spontaneous
  Country: US (occurrence: None)
  Receive Date: 20231201
  Receipt Date: 20231201
  Transmission Date: 20240109
  Serious: Yes (Hospitalization)
  Sender: FDA-Public Use
  Company Number: None

PATIENT
  Sex: Male
  Weight: 111.33 kg

DRUGS (1)
  1. CYCLOPHOSPHAMIDE [Suspect]
     Active Substance: CYCLOPHOSPHAMIDE
     Indication: Plasma cell myeloma
     Dosage: OTHER FREQUENCY : ONCE WEEKLY;?
     Route: 048

REACTIONS (5)
  - Gait inability [None]
  - Tremor [None]
  - Pyrexia [None]
  - Lethargy [None]
  - Therapy interrupted [None]
